FAERS Safety Report 16913717 (Version 2)
Quarter: 2019Q4

REPORT INFORMATION
  Report Type: Report from Study
  Country: US (occurrence: US)
  Receive Date: 20191014
  Receipt Date: 20191113
  Transmission Date: 20200122
  Serious: Yes (Other)
  Sender: FDA-Public Use
  Company Number: US-ROCHE-2430175

PATIENT
  Age: 55 Year
  Sex: Female
  Weight: 57.2 kg

DRUGS (16)
  1. BUPROPION. [Concomitant]
     Active Substance: BUPROPION
     Route: 065
     Dates: start: 20181113
  2. MIRTAZAPINE. [Concomitant]
     Active Substance: MIRTAZAPINE
     Route: 065
     Dates: start: 20181113
  3. MELATONIN [Concomitant]
     Active Substance: MELATONIN
     Route: 065
     Dates: start: 20190219
  4. PRASTERONE [Concomitant]
     Active Substance: PRASTERONE
     Route: 065
     Dates: start: 20190507
  5. CHOLECALCIFEROL [Concomitant]
     Active Substance: CHOLECALCIFEROL
     Route: 065
     Dates: start: 20190204
  6. FILGRASTIM SNDZ [Concomitant]
     Route: 065
     Dates: start: 20180919
  7. LIDOCAINE;PRILOCAINE [Concomitant]
     Route: 065
     Dates: start: 20190605
  8. LORAZEPAM. [Concomitant]
     Active Substance: LORAZEPAM
     Route: 065
     Dates: start: 20190409
  9. PERTUZUMAB. [Suspect]
     Active Substance: PERTUZUMAB
     Indication: BREAST CANCER METASTATIC
     Dosage: THEN DOSE 420 MG
     Route: 042
     Dates: start: 20190625
  10. LEVOCARNITINE. [Concomitant]
     Active Substance: LEVOCARNITINE
     Route: 065
     Dates: start: 20190204
  11. MEMANTINE. [Concomitant]
     Active Substance: MEMANTINE
     Route: 065
     Dates: start: 20190318
  12. ATEZOLIZUMAB. [Suspect]
     Active Substance: ATEZOLIZUMAB
     Indication: BREAST CANCER METASTATIC
     Route: 042
     Dates: start: 20190625
  13. TRASTUZUMAB. [Suspect]
     Active Substance: TRASTUZUMAB
     Indication: BREAST CANCER METASTATIC
     Route: 042
     Dates: start: 20190625
  14. MAGNESIUM [Concomitant]
     Active Substance: MAGNESIUM
     Route: 048
     Dates: start: 20190129
  15. DOCOSAHEXANOIC ACID [Concomitant]
     Active Substance: DOCONEXENT
     Route: 065
     Dates: start: 20190219
  16. LIDOCAINE. [Concomitant]
     Active Substance: LIDOCAINE
     Route: 065
     Dates: start: 20190603

REACTIONS (1)
  - Cardiac failure [Recovered/Resolved]

NARRATIVE: CASE EVENT DATE: 20190917
